FAERS Safety Report 18215230 (Version 6)
Quarter: 2021Q1

REPORT INFORMATION
  Report Type: Spontaneous
  Country: DE (occurrence: DE)
  Receive Date: 20200831
  Receipt Date: 20210104
  Transmission Date: 20210419
  Serious: Yes (Hospitalization, Other)
  Sender: FDA-Public Use
  Company Number: NVSC2020DE237498

PATIENT
  Age: 68 Year
  Sex: Male
  Weight: 91 kg

DRUGS (10)
  1. PACLITAXEL. [Suspect]
     Active Substance: PACLITAXEL
     Indication: NON-SMALL CELL LUNG CANCER
     Dosage: 380 MG/M2, CYCLIC
     Route: 042
     Dates: start: 20200727
  2. INNOHEP [Concomitant]
     Active Substance: TINZAPARIN SODIUM
     Indication: ARRHYTHMIA
     Dosage: 2000 IU, QD
     Route: 058
     Dates: start: 20200720
  3. DEXAMETHASON [Concomitant]
     Active Substance: DEXAMETHASONE
     Indication: PRODUCT USED FOR UNKNOWN INDICATION
     Dosage: 2 MG, QD
     Route: 048
     Dates: start: 20200720
  4. CARBOPLATIN. [Suspect]
     Active Substance: CARBOPLATIN
     Indication: NON-SMALL CELL LUNG CANCER
     Dosage: 850 MG/MIN*MLDATE LAST DOSE TAKEN PRIOR TO EVENT: 27/JUL/2020
     Route: 042
     Dates: start: 20200727
  5. SEVREDOL [Concomitant]
     Active Substance: MORPHINE
     Indication: PRODUCT USED FOR UNKNOWN INDICATION
     Dosage: 20 MG, QD
     Route: 048
     Dates: start: 2020
  6. MORPHINE SULFATE. [Concomitant]
     Active Substance: MORPHINE SULFATE
     Indication: PRODUCT USED FOR UNKNOWN INDICATION
     Dosage: 20 MG (0.33 PER DAY)
     Route: 048
     Dates: start: 2020
  7. ETORICOXIB. [Concomitant]
     Active Substance: ETORICOXIB
     Indication: BACK PAIN
     Dosage: 90 MG, QD
     Route: 048
  8. BEVACIZUMAB. [Suspect]
     Active Substance: BEVACIZUMAB
     Indication: NON-SMALL CELL LUNG CANCER
     Dosage: DATE LAST DOSE TAKEN PRIOR TO EVENT: 27/JUL/2020
     Route: 042
     Dates: start: 20200727
  9. ATEZOLIZUMAB. [Suspect]
     Active Substance: ATEZOLIZUMAB
     Indication: NON-SMALL CELL LUNG CANCER
     Dosage: DATE LAST DOSE TAKEN PRIOR TO EVENT: 27/JUL/2020
     Route: 042
     Dates: start: 20200727
  10. METOPROLOL. [Concomitant]
     Active Substance: METOPROLOL
     Indication: HYPERTENSION
     Dosage: 95 MG (0.5/ DAY)
     Route: 048

REACTIONS (9)
  - General physical health deterioration [Recovered/Resolved]
  - Diverticulitis [Recovered/Resolved]
  - Nausea [Recovered/Resolved]
  - Gastrointestinal ulcer perforation [Recovered/Resolved]
  - Hypokalaemia [Recovered/Resolved]
  - Pancytopenia [Not Recovered/Not Resolved]
  - Impaired healing [Unknown]
  - Vomiting [Recovered/Resolved]
  - Decreased appetite [Recovered/Resolved]

NARRATIVE: CASE EVENT DATE: 20200730
